FAERS Safety Report 21019087 (Version 1)
Quarter: 2022Q2

REPORT INFORMATION
  Report Type: Report from Study
  Country: US (occurrence: US)
  Receive Date: 20220628
  Receipt Date: 20220628
  Transmission Date: 20220721
  Serious: Yes (Other)
  Sender: FDA-Public Use
  Company Number: US-JAZZ-2022-US-002744

PATIENT
  Sex: Female

DRUGS (11)
  1. XYREM [Suspect]
     Active Substance: SODIUM OXYBATE
     Indication: Narcolepsy
     Dosage: 2.5 GRAM, BID
     Route: 048
     Dates: start: 201604, end: 201604
  2. XYREM [Suspect]
     Active Substance: SODIUM OXYBATE
     Indication: Cataplexy
     Dosage: DOSE ADJUSTMENT
     Route: 048
     Dates: start: 201604, end: 201607
  3. XYREM [Suspect]
     Active Substance: SODIUM OXYBATE
     Indication: Somnolence
     Dosage: 4.5 GRAM, BID
     Route: 048
     Dates: start: 201607
  4. RELPAX [Concomitant]
     Active Substance: ELETRIPTAN HYDROBROMIDE
     Indication: Product used for unknown indication
     Dosage: 40 MILLIGRAM
     Dates: start: 20151231
  5. LIDODERM [Concomitant]
     Active Substance: LIDOCAINE
     Indication: Product used for unknown indication
     Dosage: 5 PERCENT
     Dates: start: 20151231
  6. SUBOXONE [Concomitant]
     Active Substance: BUPRENORPHINE HYDROCHLORIDE\NALOXONE HYDROCHLORIDE
     Indication: Product used for unknown indication
     Dosage: 0000
     Dates: start: 20151231
  7. NUVIGIL [Concomitant]
     Active Substance: ARMODAFINIL
     Indication: Product used for unknown indication
     Dosage: 250 MILLIGRAM
     Dates: start: 20151231
  8. ADDERALL [Concomitant]
     Active Substance: AMPHETAMINE ASPARTATE\AMPHETAMINE SULFATE\DEXTROAMPHETAMINE SACCHARATE\DEXTROAMPHETAMINE SULFATE
     Indication: Product used for unknown indication
     Dosage: 20 MILLIGRAM
     Dates: start: 20151231
  9. CYMBALTA [Concomitant]
     Active Substance: DULOXETINE HYDROCHLORIDE
     Indication: Product used for unknown indication
     Dosage: 30 MILLIGRAM
     Dates: start: 20180817
  10. HUMIRA [Concomitant]
     Active Substance: ADALIMUMAB
     Indication: Product used for unknown indication
     Dosage: 40 MG/0.8 ML SYRINGE
     Dates: start: 20190327
  11. SUBLOCADE [Concomitant]
     Active Substance: BUPRENORPHINE
     Indication: Pain management
     Dosage: 100 MG/0.5 ML SYRING
     Dates: start: 20220201

REACTIONS (14)
  - Meningitis [Unknown]
  - Extradural abscess [Unknown]
  - Congenital anomaly [Unknown]
  - Bronchitis [Unknown]
  - Drug withdrawal syndrome [Unknown]
  - Blood lactate dehydrogenase increased [Unknown]
  - Panic disorder [Unknown]
  - Post-traumatic stress disorder [Unknown]
  - Abdominal pain [Unknown]
  - Pain in extremity [Unknown]
  - Nausea [Unknown]
  - Abnormal uterine bleeding [Unknown]
  - Spinal osteoarthritis [Unknown]
  - Scoliosis [Unknown]
